FAERS Safety Report 11810419 (Version 1)
Quarter: 2015Q4

REPORT INFORMATION
  Report Type: Spontaneous
  Country: US (occurrence: None)
  Receive Date: 20151207
  Receipt Date: 20151207
  Transmission Date: 20160305
  Serious: Yes (Disabling, Other)
  Sender: FDA-Public Use
  Company Number: None

PATIENT
  Age: 30 Year
  Sex: Female

DRUGS (1)
  1. CIPROFLOXACIN. [Suspect]
     Active Substance: CIPROFLOXACIN
     Indication: URINARY TRACT INFECTION
     Route: 048

REACTIONS (10)
  - Burning sensation [None]
  - Gait disturbance [None]
  - Feeling abnormal [None]
  - Maternal exposure during pregnancy [None]
  - Pruritus [None]
  - Formication [None]
  - Tendon pain [None]
  - Memory impairment [None]
  - Sleep terror [None]
  - Arthralgia [None]

NARRATIVE: CASE EVENT DATE: 20151120
